FAERS Safety Report 15546732 (Version 2)
Quarter: 2018Q4

REPORT INFORMATION
  Report Type: Report from Study
  Country: US (occurrence: US)
  Receive Date: 20181024
  Receipt Date: 20181130
  Transmission Date: 20190205
  Serious: Yes (Hospitalization)
  Sender: FDA-Public Use
  Company Number: US-PFIZER INC-2018421307

PATIENT
  Age: 20 Year
  Sex: Female

DRUGS (21)
  1. METHOTREXATE SODIUM. [Suspect]
     Active Substance: METHOTREXATE SODIUM
     Indication: B-CELL TYPE ACUTE LEUKAEMIA
     Dosage: 200 MG/M2, CYCLIC (DAY 1)
     Route: 042
     Dates: start: 20180711, end: 20180824
  2. CYTARABINE. [Suspect]
     Active Substance: CYTARABINE
     Indication: B-CELL TYPE ACUTE LEUKAEMIA
     Dosage: 3000 MG/M2, CYCLIC (DAY 2,3)
     Route: 042
     Dates: start: 20180612, end: 20180827
  3. CAFFEINE. [Concomitant]
     Active Substance: CAFFEINE
     Route: 048
  4. IMMUNE GLOBULIN [Concomitant]
     Active Substance: HUMAN IMMUNOGLOBULIN G
     Dosage: UNK
     Route: 042
  5. CALCIUM CHLORIDE. [Concomitant]
     Active Substance: CALCIUM CHLORIDE
     Dosage: UNK
  6. TRAMADOL. [Concomitant]
     Active Substance: TRAMADOL
     Dosage: UNK
  7. SENNA-DOCUSATE [Concomitant]
     Active Substance: DOCUSATE SODIUM\SENNOSIDES
  8. GABAPENTIN. [Concomitant]
     Active Substance: GABAPENTIN
     Route: 048
  9. KEPPRA [Concomitant]
     Active Substance: LEVETIRACETAM
     Route: 048
  10. VINCRISTINE SULFATE. [Suspect]
     Active Substance: VINCRISTINE SULFATE
     Indication: B-CELL TYPE ACUTE LEUKAEMIA
     Dosage: 2 MG, CYCLIC (DAY 11)
     Route: 042
     Dates: start: 20180617, end: 20180810
  11. VALTREX [Concomitant]
     Active Substance: VALACYCLOVIR HYDROCHLORIDE
     Route: 048
  12. OFATUMUMAB [Suspect]
     Active Substance: OFATUMUMAB
     Indication: B-CELL TYPE ACUTE LEUKAEMIA
     Dosage: 2000 MG/M2, CYCLIC (DAY 1, 8)
     Route: 042
     Dates: start: 20180614, end: 20180831
  13. MESNA. [Suspect]
     Active Substance: MESNA
     Indication: B-CELL TYPE ACUTE LEUKAEMIA
     Dosage: 940 MG, CYCLIC (DAY 1, 3)
     Route: 042
     Dates: start: 20180614, end: 20180802
  14. ACTIGALL [Concomitant]
     Active Substance: URSODIOL
     Route: 048
  15. LOVENOX [Concomitant]
     Active Substance: ENOXAPARIN SODIUM
     Dosage: UNK
  16. POTASSIUM CHLORIDE. [Concomitant]
     Active Substance: POTASSIUM CHLORIDE
     Dosage: UNK
  17. INOTUZUMAB OZOGAMICIN [Suspect]
     Active Substance: INOTUZUMAB OZOGAMICIN
     Indication: B-CELL TYPE ACUTE LEUKAEMIA
     Dosage: 0.3 MG/M2, CYCLIC (DAY 1)
     Route: 042
     Dates: start: 20180918
  18. INOTUZUMAB OZOGAMICIN [Suspect]
     Active Substance: INOTUZUMAB OZOGAMICIN
     Dosage: 0.6 MG/M2, CYCLIC
     Route: 042
     Dates: start: 20180925
  19. CYCLOPHOSPHAMIDE. [Suspect]
     Active Substance: CYCLOPHOSPHAMIDE
     Indication: B-CELL TYPE ACUTE LEUKAEMIA
     Dosage: 470 MG, CYCLIC (DAY 4)
     Route: 042
     Dates: start: 20180614, end: 20180802
  20. PEGFILGRASTIM [Suspect]
     Active Substance: PEGFILGRASTIM
     Dosage: 6 MG, SINGLE
     Route: 042
     Dates: start: 20180620, end: 20180829
  21. MELATONIN [Concomitant]
     Active Substance: MELATONIN
     Dosage: UNK

REACTIONS (1)
  - Muscular weakness [Unknown]

NARRATIVE: CASE EVENT DATE: 20181010
